FAERS Safety Report 5464618-X (Version None)
Quarter: 2007Q3

REPORT INFORMATION
  Report Type: 
  Country: None (occurrence: None)
  Receive Date: 20070820
  Receipt Date: 20070517
  Transmission Date: 20080115
  Serious: No
  Sender: FDA-Public Use
  Company Number: WAES 0705USA03271

PATIENT
  Age: 51 Year
  Sex: Female

DRUGS (6)
  1. JANUVIA [Suspect]
     Indication: TYPE 2 DIABETES MELLITUS
     Dosage: 100 MG/DAILY/PO
     Route: 048
     Dates: start: 20070315, end: 20070517
  2. PROZAC [Concomitant]
  3. RAZADYNE [Concomitant]
  4. LISINOPRIL [Concomitant]
  5. METFORMIN HYDROCHLORIDE [Concomitant]
  6. PROPAMIDINE [Concomitant]

REACTIONS (2)
  - DIZZINESS [None]
  - MEMORY IMPAIRMENT [None]
